FAERS Safety Report 4376083-4 (Version None)
Quarter: 2004Q2

REPORT INFORMATION
  Report Type: 
  Country: None (occurrence: None)
  Receive Date: 20040611
  Receipt Date: 20020529
  Transmission Date: 20050107
  Serious: Yes (Hospitalization)
  Sender: FDA-Public Use
  Company Number: US-GLAXOSMITHKLINE-A0370197A

PATIENT
  Age: 43 Year
  Sex: Female
  Weight: 68.2 kg

DRUGS (1)
  1. ADVAIR DISKUS 100/50 [Suspect]
     Indication: ASTHMA
     Route: 055
     Dates: start: 20020506, end: 20020509

REACTIONS (13)
  - ANAPHYLACTIC REACTION [None]
  - BRONCHOSPASM [None]
  - DYSPNOEA [None]
  - HYPERGLYCAEMIA [None]
  - HYPOTENSION [None]
  - LOSS OF CONSCIOUSNESS [None]
  - METABOLIC ACIDOSIS [None]
  - RESPIRATORY ACIDOSIS [None]
  - STATUS ASTHMATICUS [None]
  - TACHYCARDIA [None]
  - TOTAL LUNG CAPACITY DECREASED [None]
  - VOMITING [None]
  - WHEEZING [None]
